FAERS Safety Report 19940694 (Version 4)
Quarter: 2025Q2

REPORT INFORMATION
  Report Type: Report from Study
  Country: CA (occurrence: CA)
  Receive Date: 20211011
  Receipt Date: 20250408
  Transmission Date: 20250716
  Serious: Yes (Other)
  Sender: TAKEDA
  Company Number: CA-TAKEDA-2019TUS003519

PATIENT
  Age: 37 Year
  Sex: Female

DRUGS (13)
  1. VEDOLIZUMAB [Suspect]
     Active Substance: VEDOLIZUMAB
     Indication: Colitis ulcerative
  2. VEDOLIZUMAB [Suspect]
     Active Substance: VEDOLIZUMAB
  3. VEDOLIZUMAB [Suspect]
     Active Substance: VEDOLIZUMAB
  4. VEDOLIZUMAB [Suspect]
     Active Substance: VEDOLIZUMAB
  5. VEDOLIZUMAB [Suspect]
     Active Substance: VEDOLIZUMAB
  6. VEDOLIZUMAB [Suspect]
     Active Substance: VEDOLIZUMAB
  7. VEDOLIZUMAB [Suspect]
     Active Substance: VEDOLIZUMAB
     Dosage: 300 MILLIGRAM, Q4WEEKS
     Dates: start: 20250402
  8. PANTOPRAZOLE SODIUM [Suspect]
     Active Substance: PANTOPRAZOLE SODIUM
     Indication: Gastrooesophageal reflux disease
  9. PREDNISONE [Concomitant]
     Active Substance: PREDNISONE
  10. DELATESTRYL [Concomitant]
     Active Substance: TESTOSTERONE ENANTHATE
     Dosage: 0.3 MILLILITER, Q2WEEKS
  11. GABAPENTIN [Concomitant]
     Active Substance: GABAPENTIN
  12. PROPRANOLOL [Concomitant]
     Active Substance: PROPRANOLOL HYDROCHLORIDE
  13. PREGABALIN [Concomitant]
     Active Substance: PREGABALIN

REACTIONS (18)
  - Suicidal ideation [Unknown]
  - Colitis ulcerative [Unknown]
  - Abdominal pain upper [Unknown]
  - Agoraphobia [Unknown]
  - Anxiety [Unknown]
  - Post-traumatic stress disorder [Unknown]
  - Panic attack [Unknown]
  - Lethargy [Unknown]
  - Perfume sensitivity [Unknown]
  - Oesophagitis [Unknown]
  - Loss of therapeutic response [Unknown]
  - Mental fatigue [Unknown]
  - Gender dysphoria [Unknown]
  - Depression [Unknown]
  - Off label use [Unknown]
  - Malaise [Unknown]
  - Haemorrhoids [Unknown]
  - Nausea [Unknown]

NARRATIVE: CASE EVENT DATE: 20250402
